FAERS Safety Report 17811370 (Version 1)
Quarter: 2020Q2

REPORT INFORMATION
  Report Type: Spontaneous
  Country: JP (occurrence: JP)
  Receive Date: 20200521
  Receipt Date: 20200521
  Transmission Date: 20200714
  Serious: Yes (Other)
  Sender: FDA-Public Use
  Company Number: NVSJ2020JP005169

PATIENT
  Sex: Male

DRUGS (10)
  1. MYCOPHENOLATE MOFETIL. [Concomitant]
     Active Substance: MYCOPHENOLATE MOFETIL
     Indication: TRANSPLANT
     Dosage: UNK
     Route: 065
  2. MYCOPHENOLATE MOFETIL. [Concomitant]
     Active Substance: MYCOPHENOLATE MOFETIL
     Indication: RENAL TRANSPLANT
  3. RITUXIMAB. [Concomitant]
     Active Substance: RITUXIMAB
     Indication: RENAL TRANSPLANT
  4. CERTICAN [Suspect]
     Active Substance: EVEROLIMUS
     Indication: TRANSPLANT
     Dosage: UNK
     Route: 065
  5. CERTICAN [Suspect]
     Active Substance: EVEROLIMUS
     Indication: RENAL TRANSPLANT
  6. NEORAL [Suspect]
     Active Substance: CYCLOSPORINE
     Indication: TRANSPLANT
     Dosage: UNK
     Route: 065
  7. RITUXIMAB. [Concomitant]
     Active Substance: RITUXIMAB
     Indication: TRANSPLANT
     Dosage: UNK
     Route: 065
  8. NEORAL [Suspect]
     Active Substance: CYCLOSPORINE
     Indication: RENAL TRANSPLANT
  9. TACROLIMUS. [Concomitant]
     Active Substance: TACROLIMUS
     Indication: RENAL TRANSPLANT
  10. TACROLIMUS. [Concomitant]
     Active Substance: TACROLIMUS
     Indication: TRANSPLANT
     Dosage: UNK
     Route: 065

REACTIONS (2)
  - Lung carcinoma cell type unspecified stage I [Unknown]
  - Interstitial lung disease [Unknown]
